FAERS Safety Report 13548036 (Version 2)
Quarter: 2017Q2

REPORT INFORMATION
  Report Type: Spontaneous
  Country: US (occurrence: US)
  Receive Date: 20170516
  Receipt Date: 20170615
  Transmission Date: 20170830
  Serious: Yes (Hospitalization)
  Sender: FDA-Public Use
  Company Number: US-ROCHE-1935011

PATIENT
  Age: 76 Year
  Sex: Female

DRUGS (1)
  1. RITUXAN [Suspect]
     Active Substance: RITUXIMAB
     Indication: PULMONARY FIBROSIS
     Dosage: REPEAT DAY 14, 42 AND 94 ;ONGOING: NO
     Route: 042

REACTIONS (6)
  - Hyperhidrosis [Unknown]
  - Dyspnoea [Unknown]
  - Chest pain [Unknown]
  - Oxygen saturation decreased [Recovered/Resolved]
  - Dizziness [Unknown]
  - Hypotension [Recovered/Resolved]

NARRATIVE: CASE EVENT DATE: 20170511
